FAERS Safety Report 19449940 (Version 1)
Quarter: 2021Q2

REPORT INFORMATION
  Report Type: Spontaneous
  Country: JP (occurrence: JP)
  Receive Date: 20210622
  Receipt Date: 20210622
  Transmission Date: 20210717
  Serious: Yes (Disabling, Other)
  Sender: FDA-Public Use
  Company Number: JP-UCBSA-2021029997

PATIENT
  Age: 48 Year
  Sex: Male
  Weight: 52 kg

DRUGS (20)
  1. VALPROIC ACID. [Suspect]
     Active Substance: VALPROIC ACID
     Indication: HEMICONVULSION-HEMIPLEGIA-EPILEPSY SYNDROME
     Dosage: 800 MILLIGRAMS
  2. ETHOSUXIMIDE. [Suspect]
     Active Substance: ETHOSUXIMIDE
     Indication: HEMICONVULSION-HEMIPLEGIA-EPILEPSY SYNDROME
     Dosage: 1050 MILLIGRAMS
  3. CLOBAZAM. [Suspect]
     Active Substance: CLOBAZAM
     Indication: HEMICONVULSION-HEMIPLEGIA-EPILEPSY SYNDROME
     Dosage: 5 MILLIGRAMS
  4. CLOBAZAM. [Suspect]
     Active Substance: CLOBAZAM
     Dosage: 20  MILLIGRAMS
  5. ZONISAMIDE. [Suspect]
     Active Substance: ZONISAMIDE
     Dosage: 500 MILLIGRAMS
  6. PHENOBARBITAL. [Suspect]
     Active Substance: PHENOBARBITAL
     Indication: HEMICONVULSION-HEMIPLEGIA-EPILEPSY SYNDROME
     Dosage: 600 MILLIGRAMS
  7. ZONISAMIDE. [Suspect]
     Active Substance: ZONISAMIDE
     Dosage: 200 MILLIGRAMS
  8. PHENYTOIN. [Suspect]
     Active Substance: PHENYTOIN
     Indication: HEMICONVULSION-HEMIPLEGIA-EPILEPSY SYNDROME
     Dosage: 300 MILLIGRAMS
  9. LAMOTRIGINE. [Suspect]
     Active Substance: LAMOTRIGINE
     Indication: HEMICONVULSION-HEMIPLEGIA-EPILEPSY SYNDROME
     Dosage: 225 MILLIGRAMS
  10. CLONAZEPAM. [Suspect]
     Active Substance: CLONAZEPAM
     Dosage: 0.5 MILLIGRAM, ONCE DAILY (QD)
  11. CARBAMAZEPINE. [Suspect]
     Active Substance: CARBAMAZEPINE
     Dosage: 600 MILLIGRAMS
  12. PHENYTOIN. [Suspect]
     Active Substance: PHENYTOIN
     Dosage: 220 MILLIGRAMS
  13. PHENYTOIN. [Suspect]
     Active Substance: PHENYTOIN
     Dosage: 150 MILLIGRAMS
  14. E KEPPRA [Suspect]
     Active Substance: LEVETIRACETAM
     Indication: HEMICONVULSION-HEMIPLEGIA-EPILEPSY SYNDROME
     Dosage: 3000 MILLIGRAMS
  15. VALPROIC ACID. [Suspect]
     Active Substance: VALPROIC ACID
     Dosage: 520 MILLIGRAMS
  16. VALPROIC ACID. [Suspect]
     Active Substance: VALPROIC ACID
     Dosage: 400 MILLIGRAMS
  17. CLONAZEPAM. [Suspect]
     Active Substance: CLONAZEPAM
     Indication: HEMICONVULSION-HEMIPLEGIA-EPILEPSY SYNDROME
     Dosage: 1.5 MILLIGRAM, ONCE DAILY (QD)
  18. ZONISAMIDE. [Suspect]
     Active Substance: ZONISAMIDE
     Indication: HEMICONVULSION-HEMIPLEGIA-EPILEPSY SYNDROME
     Dosage: 300 MILLIGRAMS
  19. E KEPPRA [Suspect]
     Active Substance: LEVETIRACETAM
     Dosage: 2000 MILLIGRAMS
  20. CARBAMAZEPINE. [Suspect]
     Active Substance: CARBAMAZEPINE
     Indication: HEMICONVULSION-HEMIPLEGIA-EPILEPSY SYNDROME
     Dosage: 500 MILLIGRAMS

REACTIONS (6)
  - Myoclonic epilepsy [Unknown]
  - Multiple-drug resistance [Unknown]
  - Atonic seizures [Unknown]
  - Tonic convulsion [Recovered/Resolved]
  - Product use issue [Unknown]
  - Product use in unapproved indication [Unknown]
